FAERS Safety Report 18504384 (Version 2)
Quarter: 2020Q4

REPORT INFORMATION
  Report Type: Report from Study
  Country: TR (occurrence: TR)
  Receive Date: 20201113
  Receipt Date: 20201124
  Transmission Date: 20210114
  Serious: Yes (Hospitalization)
  Sender: FDA-Public Use
  Company Number: TR-BAXTER-2020BAX023232

PATIENT

DRUGS (4)
  1. DOXIL [Suspect]
     Active Substance: DOXORUBICIN HYDROCHLORIDE
     Indication: BLOOD DISORDER
     Route: 065
  2. ENDOXAN 1G IV INFUZ. ICIN TOZ ICEREN FLAKON [Suspect]
     Active Substance: CYCLOPHOSPHAMIDE
     Indication: BLOOD DISORDER
     Route: 065
  3. PREDNISOLONE. [Suspect]
     Active Substance: PREDNISOLONE
     Indication: BLOOD DISORDER
     Route: 065
  4. VINCRISTINE [Suspect]
     Active Substance: VINCRISTINE
     Indication: BLOOD DISORDER
     Route: 065

REACTIONS (1)
  - COVID-19 [Unknown]
